FAERS Safety Report 21257516 (Version 1)
Quarter: 2022Q3

REPORT INFORMATION
  Report Type: Spontaneous
  Country: FR (occurrence: FR)
  Receive Date: 20220826
  Receipt Date: 20220826
  Transmission Date: 20221026
  Serious: Yes (Other)
  Sender: FDA-Public Use
  Company Number: None

PATIENT
  Age: 46 Year
  Sex: Female
  Weight: 60 kg

DRUGS (4)
  1. METHOTREXATE [Suspect]
     Active Substance: METHOTREXATE
     Indication: Ankylosing spondylitis
     Dosage: UNIT DOSE: 10 MG, FREQUENCY TIME : 1 WEEK, DURATION :1 YEAR
     Route: 065
     Dates: start: 202011, end: 20220801
  2. SIMPONI [Suspect]
     Active Substance: GOLIMUMAB
     Indication: Ankylosing spondylitis
     Dosage: SIMPONI 50 MG, FREQUENCY TIME : 1 MONTH, UNIT DOSE: 50 MG, DURATION : 1 YEAR
     Dates: start: 202011, end: 20220801
  3. FOLIC ACID [Concomitant]
     Active Substance: FOLIC ACID
     Indication: Product used for unknown indication
     Dosage: STRENGTH: 5 MG
  4. CALCIUM CARBONATE\CHOLECALCIFEROL [Concomitant]
     Active Substance: CALCIUM CARBONATE\CHOLECALCIFEROL
     Indication: Product used for unknown indication
     Dosage: CACIT VITAMIN D3 1000 MG/880 IU, EFFERVESCENT GRANULES FOR ORAL SOLUTION IN SACHET
     Route: 065

REACTIONS (2)
  - Invasive ductal breast carcinoma [Not Recovered/Not Resolved]
  - Condition aggravated [Not Recovered/Not Resolved]

NARRATIVE: CASE EVENT DATE: 20220603
